FAERS Safety Report 7321881-8 (Version None)
Quarter: 2011Q1

REPORT INFORMATION
  Report Type: 
  Country: None (occurrence: None)
  Receive Date: 20110228
  Receipt Date: 20110214
  Transmission Date: 20110831
  Serious: Yes (Other)
  Sender: FDA-Public Use
  Company Number: US-ELI_LILLY_AND_COMPANY-US201102004067

PATIENT
  Sex: Female

DRUGS (2)
  1. TAXOTERE [Concomitant]
     Route: 042
  2. GEMZAR [Suspect]
     Route: 042

REACTIONS (5)
  - BACK PAIN [None]
  - CONVULSION [None]
  - LOSS OF CONSCIOUSNESS [None]
  - DYSPNOEA [None]
  - EYE DISORDER [None]
